FAERS Safety Report 15305603 (Version 2)
Quarter: 2018Q3

REPORT INFORMATION
  Report Type: Spontaneous
  Country: DE (occurrence: DE)
  Receive Date: 20180822
  Receipt Date: 20180924
  Transmission Date: 20181010
  Serious: Yes (Life-Threatening, Hospitalization, Other)
  Sender: FDA-Public Use
  Company Number: DE-AMGEN-DEUSP2018102960

PATIENT
  Age: 75 Year
  Sex: Female
  Weight: 83 kg

DRUGS (67)
  1. NPLATE [Suspect]
     Active Substance: ROMIPLOSTIM
     Dosage: 150 MUG, Q4WK
     Route: 058
     Dates: start: 20170509
  2. NPLATE [Suspect]
     Active Substance: ROMIPLOSTIM
     Dosage: 250 MUG, UNK
     Route: 058
     Dates: start: 20180710, end: 20180718
  3. MACROGOL [Concomitant]
     Active Substance: POLYETHYLENE GLYCOLS
  4. NPLATE [Suspect]
     Active Substance: ROMIPLOSTIM
     Indication: IMMUNE THROMBOCYTOPENIC PURPURA
     Dosage: 250 MUG, UNK
     Route: 058
     Dates: start: 20131026
  5. NPLATE [Suspect]
     Active Substance: ROMIPLOSTIM
     Dosage: 250 MUG, Q2WK
     Route: 058
     Dates: start: 20160712
  6. NPLATE [Suspect]
     Active Substance: ROMIPLOSTIM
     Dosage: 150 MUG, UNK
     Route: 058
     Dates: start: 20160921
  7. NPLATE [Suspect]
     Active Substance: ROMIPLOSTIM
     Dosage: 100 MUG, UNK
     Route: 058
     Dates: start: 20170103
  8. NPLATE [Suspect]
     Active Substance: ROMIPLOSTIM
     Dosage: 100 MUG, UNK
     Route: 058
     Dates: start: 20170228
  9. NPLATE [Suspect]
     Active Substance: ROMIPLOSTIM
     Dosage: 500 MUG, UNK
     Route: 058
     Dates: start: 20180713
  10. NPLATE [Suspect]
     Active Substance: ROMIPLOSTIM
     Dosage: 500 MUG, UNK
     Route: 058
     Dates: start: 20180726
  11. OMEPRAZOLE. [Concomitant]
     Active Substance: OMEPRAZOLE
     Dosage: 20 MG, QD
  12. XARELTO [Concomitant]
     Active Substance: RIVAROXABAN
  13. NPLATE [Suspect]
     Active Substance: ROMIPLOSTIM
     Dosage: 250 MUG, UNK
     Route: 058
     Dates: start: 20160111
  14. NPLATE [Suspect]
     Active Substance: ROMIPLOSTIM
     Dosage: 250 MUG, UNK
     Route: 058
     Dates: start: 20160209
  15. NPLATE [Suspect]
     Active Substance: ROMIPLOSTIM
     Dosage: 250 MUG, UNK
     Route: 058
     Dates: start: 20160223
  16. NPLATE [Suspect]
     Active Substance: ROMIPLOSTIM
     Dosage: 250 MUG, UNK
     Route: 058
     Dates: start: 20160628
  17. NPLATE [Suspect]
     Active Substance: ROMIPLOSTIM
     Dosage: 100 MUG, UNK
     Route: 058
     Dates: start: 20161026
  18. NPLATE [Suspect]
     Active Substance: ROMIPLOSTIM
     Dosage: 100 MUG, UNK
     Route: 058
     Dates: start: 20170114
  19. DTO [Concomitant]
  20. AZATHIOPRINE. [Concomitant]
     Active Substance: AZATHIOPRINE
     Dosage: UNK
     Dates: start: 201405
  21. NPLATE [Suspect]
     Active Substance: ROMIPLOSTIM
     Dosage: 250 MUG, UNK
     Route: 058
     Dates: start: 20160308
  22. NPLATE [Suspect]
     Active Substance: ROMIPLOSTIM
     Dosage: 250 MUG, UNK
     Route: 058
     Dates: start: 20160419
  23. NPLATE [Suspect]
     Active Substance: ROMIPLOSTIM
     Dosage: 250 MUG, UNK
     Route: 058
     Dates: start: 20160614
  24. NPLATE [Suspect]
     Active Substance: ROMIPLOSTIM
     Dosage: 250 MUG, QWK
     Route: 058
     Dates: start: 20160802
  25. NPLATE [Suspect]
     Active Substance: ROMIPLOSTIM
     Dosage: 200 MUG, UNK
     Route: 058
     Dates: start: 20160906
  26. NPLATE [Suspect]
     Active Substance: ROMIPLOSTIM
     Dosage: 175 MUG, UNK
     Route: 058
     Dates: start: 20160914
  27. NPLATE [Suspect]
     Active Substance: ROMIPLOSTIM
     Dosage: 100 MUG, Q4WK
     Route: 058
     Dates: start: 20170412
  28. NPLATE [Suspect]
     Active Substance: ROMIPLOSTIM
     Dosage: 150 MUG, UNK
     Route: 058
     Dates: start: 20180612
  29. NPLATE [Suspect]
     Active Substance: ROMIPLOSTIM
     Dosage: 500 MUG, UNK
     Route: 058
     Dates: start: 20180802
  30. MENINGOCOCCI A VACCINE [Concomitant]
     Dosage: UNK
     Dates: start: 201702
  31. MOXONIDINE [Concomitant]
     Active Substance: MOXONIDINE
     Dosage: 0.2 MG, QD
  32. NPLATE [Suspect]
     Active Substance: ROMIPLOSTIM
     Dosage: 250 MUG, UNK
     Route: 058
     Dates: start: 20160322
  33. NPLATE [Suspect]
     Active Substance: ROMIPLOSTIM
     Dosage: 250 MUG, UNK
     Route: 058
     Dates: start: 20160405
  34. NPLATE [Suspect]
     Active Substance: ROMIPLOSTIM
     Dosage: 250 MUG, UNK
     Route: 058
     Dates: start: 20160503
  35. NPLATE [Suspect]
     Active Substance: ROMIPLOSTIM
     Dosage: 250 MUG, UNK
     Route: 058
     Dates: start: 20160928
  36. NPLATE [Suspect]
     Active Substance: ROMIPLOSTIM
     Dosage: 150 MUG, UNK
     Route: 058
     Dates: start: 20161005
  37. NPLATE [Suspect]
     Active Substance: ROMIPLOSTIM
     Dosage: 100 MUG, UNK
     Route: 058
     Dates: start: 20161012
  38. NPLATE [Suspect]
     Active Substance: ROMIPLOSTIM
     Dosage: 75 MUG, UNK
     Route: 058
     Dates: start: 20161116
  39. NPLATE [Suspect]
     Active Substance: ROMIPLOSTIM
     Dosage: 100 MUG, UNK
     Route: 058
     Dates: start: 20170329
  40. AMLODIPINE [Concomitant]
     Active Substance: AMLODIPINE BESYLATE
     Indication: HYPERTENSION
     Dosage: 5 MG X2, UNK
  41. VOTUM [Concomitant]
     Active Substance: OLMESARTAN MEDOXOMIL
     Dosage: 20 MG (2TABLETS), UNK
  42. NPLATE [Suspect]
     Active Substance: ROMIPLOSTIM
     Dosage: 200 MUG, QWK
     Route: 058
     Dates: start: 20160726
  43. NPLATE [Suspect]
     Active Substance: ROMIPLOSTIM
     Dosage: 250 MUG, QWK
     Route: 058
     Dates: start: 20160816
  44. NPLATE [Suspect]
     Active Substance: ROMIPLOSTIM
     Dosage: 75 MUG, UNK
     Route: 058
     Dates: start: 20161109
  45. NPLATE [Suspect]
     Active Substance: ROMIPLOSTIM
     Dosage: 100 MUG, UNK
     Route: 058
     Dates: start: 20161221
  46. NPLATE [Suspect]
     Active Substance: ROMIPLOSTIM
     Dosage: UNK
     Route: 058
  47. PNEUMOVAX 23 [Concomitant]
     Active Substance: PNEUMOCOCCAL VACCINE, POLYVALENT 23
     Dosage: UNK
     Dates: start: 201412
  48. INSULIN [Concomitant]
     Active Substance: INSULIN NOS
     Indication: TYPE 2 DIABETES MELLITUS
  49. LETROZOLE. [Concomitant]
     Active Substance: LETROZOLE
     Dosage: UNK UNK, QD
  50. HCT [Concomitant]
     Active Substance: HYDROCHLOROTHIAZIDE
     Dosage: 12.5 MG, UNK
  51. DEKRISTOL [Concomitant]
     Active Substance: CHOLECALCIFEROL
     Dosage: 20000 UNK, QD
  52. NPLATE [Suspect]
     Active Substance: ROMIPLOSTIM
     Dosage: 250 MUG, UNK
     Route: 058
     Dates: start: 20160105
  53. NPLATE [Suspect]
     Active Substance: ROMIPLOSTIM
     Dosage: 250 MUG, UNK
     Route: 058
     Dates: start: 20160119
  54. NPLATE [Suspect]
     Active Substance: ROMIPLOSTIM
     Dosage: 250 MUG, UNK
     Route: 058
     Dates: start: 20160126
  55. NPLATE [Suspect]
     Active Substance: ROMIPLOSTIM
     Dosage: 250 MUG, UNK
     Route: 058
     Dates: start: 20160517
  56. NPLATE [Suspect]
     Active Substance: ROMIPLOSTIM
     Dosage: 100 MUG, UNK
     Route: 058
     Dates: start: 20161102
  57. NPLATE [Suspect]
     Active Substance: ROMIPLOSTIM
     Dosage: 100 MUG, UNK
     Route: 058
     Dates: start: 20161207
  58. NPLATE [Suspect]
     Active Substance: ROMIPLOSTIM
     Dosage: 100 MUG, UNK
     Route: 058
     Dates: start: 20170314
  59. NPLATE [Suspect]
     Active Substance: ROMIPLOSTIM
     Dosage: 150 MUG, UNK
     Route: 058
     Dates: start: 20180514
  60. NPLATE [Suspect]
     Active Substance: ROMIPLOSTIM
     Dosage: 500 MUG, UNK
     Route: 058
     Dates: start: 20180718
  61. DEXAMETHASONE. [Concomitant]
     Active Substance: DEXAMETHASONE
     Dosage: 40 MG X4, UNK
     Dates: start: 201807
  62. CORTISONE [Concomitant]
     Active Substance: CORTISONE\HYDROCORTISONE
     Indication: TYPE 2 DIABETES MELLITUS
  63. NPLATE [Suspect]
     Active Substance: ROMIPLOSTIM
     Dosage: 250 MUG, UNK
     Route: 058
     Dates: start: 20160531
  64. NPLATE [Suspect]
     Active Substance: ROMIPLOSTIM
     Dosage: 200 MUG, QWK
     Route: 058
     Dates: start: 20160830
  65. NPLATE [Suspect]
     Active Substance: ROMIPLOSTIM
     Dosage: 150 MUG, UNK
     Route: 058
     Dates: start: 20161020
  66. NPLATE [Suspect]
     Active Substance: ROMIPLOSTIM
     Dosage: 200 MUG, UNK
     Route: 058
     Dates: start: 20170606
  67. ADALAT [Concomitant]
     Active Substance: NIFEDIPINE
     Indication: HYPERTENSION
     Dosage: 10 MG, UNK

REACTIONS (29)
  - Spinal fracture [Unknown]
  - Dyspnoea exertional [Unknown]
  - Breast cancer [Unknown]
  - Dyspepsia [Unknown]
  - Femur fracture [Unknown]
  - Memory impairment [Unknown]
  - Asthenia [Unknown]
  - Nasopharyngitis [Unknown]
  - Constipation [Unknown]
  - Vertigo [Unknown]
  - Fatigue [Unknown]
  - Arthralgia [Recovering/Resolving]
  - Immune thrombocytopenic purpura [Recovered/Resolved]
  - Malignant melanoma [Unknown]
  - Nausea [Unknown]
  - Cough [Unknown]
  - Lentigo maligna [Unknown]
  - Fall [Unknown]
  - Laceration [Unknown]
  - Hypercalcaemia [Unknown]
  - General physical health deterioration [Unknown]
  - Contusion [Unknown]
  - Contusion [Unknown]
  - Dizziness [Unknown]
  - Respiratory distress [Unknown]
  - Axillary pain [Unknown]
  - Decreased appetite [Unknown]
  - Abdominal discomfort [Unknown]
  - Drug ineffective [Recovered/Resolved]

NARRATIVE: CASE EVENT DATE: 201405
